FAERS Safety Report 7785358-8 (Version None)
Quarter: 2011Q3

REPORT INFORMATION
  Report Type: 
  Country: None (occurrence: None)
  Receive Date: 20110929
  Receipt Date: 20110926
  Transmission Date: 20111222
  Serious: No
  Sender: FDA-Public Use
  Company Number: US-PFIZER INC-2011230129

PATIENT
  Sex: Female
  Weight: 56.7 kg

DRUGS (2)
  1. TOPAMAX [Concomitant]
     Indication: MIGRAINE
     Dosage: 400 MG, DAILY
  2. LYRICA [Suspect]
     Indication: FIBROMYALGIA
     Dosage: 75 MG, 2X/DAY
     Route: 048
     Dates: start: 20110901

REACTIONS (5)
  - FATIGUE [None]
  - MALAISE [None]
  - DEPRESSED MOOD [None]
  - NASOPHARYNGITIS [None]
  - SLUGGISHNESS [None]
